FAERS Safety Report 6193707-X (Version None)
Quarter: 2009Q2

REPORT INFORMATION
  Report Type: 
  Country: None (occurrence: None)
  Receive Date: 20090518
  Receipt Date: 20090506
  Transmission Date: 20091009
  Serious: Yes (Other)
  Sender: FDA-Public Use
  Company Number: US-ELI_LILLY_AND_COMPANY-US200905001817

PATIENT
  Sex: Male

DRUGS (3)
  1. CYMBALTA [Suspect]
     Dosage: 60 MG, UNK
     Route: 048
  2. METHADONE [Concomitant]
     Indication: PAIN
  3. CLONOPIN [Concomitant]
     Indication: ANXIETY

REACTIONS (4)
  - INSOMNIA [None]
  - RESPIRATORY DEPRESSION [None]
  - SELF-MEDICATION [None]
  - SLEEP DISORDER [None]
